FAERS Safety Report 7268306-9 (Version None)
Quarter: 2011Q1

REPORT INFORMATION
  Report Type: 
  Country: None (occurrence: None)
  Receive Date: 20110121
  Receipt Date: 20110105
  Transmission Date: 20110831
  Serious: Yes (Other)
  Sender: FDA-Public Use
  Company Number: CA-004499

PATIENT
  Sex: Female

DRUGS (2)
  1. DALTEPARIN SODIUM [Concomitant]
  2. ENDOMETRIN [Suspect]
     Indication: PROPHYLAXIS
     Dosage: (6 TABLETS/DAY VAGINAL)
     Route: 067
     Dates: start: 20100917

REACTIONS (3)
  - ABORTION SPONTANEOUS [None]
  - INJECTION SITE HAEMATOMA [None]
  - DRUG EXPOSURE DURING PREGNANCY [None]
